FAERS Safety Report 13260501 (Version 3)
Quarter: 2017Q2

REPORT INFORMATION
  Report Type: Spontaneous
  Country: HK (occurrence: HK)
  Receive Date: 20170222
  Receipt Date: 20170425
  Transmission Date: 20170830
  Serious: Yes (Other)
  Sender: FDA-Public Use
  Company Number: HK-009507513-1702HKG006759

PATIENT
  Age: 51 Year
  Sex: Male

DRUGS (1)
  1. PEMBROLIZUMAB. [Suspect]
     Active Substance: PEMBROLIZUMAB
     Indication: ANGIOCENTRIC LYMPHOMA
     Dosage: 2 MG/KG, EVERY THREE WEEKS, , 4 CYCLES

REACTIONS (2)
  - Off label use [Unknown]
  - Graft versus host disease in skin [Unknown]
